FAERS Safety Report 6383596-2 (Version None)
Quarter: 2009Q4

REPORT INFORMATION
  Report Type: 
  Country: None (occurrence: None)
  Receive Date: 20091001
  Receipt Date: 20090924
  Transmission Date: 20100525
  Serious: Yes (Other)
  Sender: FDA-Public Use
  Company Number: US-ROCHE-658867

PATIENT

DRUGS (1)
  1. TAMIFLU [Suspect]
     Route: 048

REACTIONS (1)
  - GRAND MAL CONVULSION [None]
